FAERS Safety Report 6937285-3 (Version None)
Quarter: 2010Q3

REPORT INFORMATION
  Report Type: 
  Country: None (occurrence: None)
  Receive Date: 20100823
  Receipt Date: 20100813
  Transmission Date: 20110219
  Serious: Yes (Other)
  Sender: FDA-Public Use
  Company Number: B0662646A

PATIENT
  Sex: Male

DRUGS (8)
  1. SERETIDE DISKUS [Suspect]
     Indication: ASTHMA
     Dosage: 1PUFF TWICE PER DAY
     Route: 055
  2. LOGIMAX [Concomitant]
     Route: 065
  3. VASTAREL [Concomitant]
     Route: 065
  4. PANTOPRAZOLE [Concomitant]
     Route: 065
  5. PRAVASTATIN [Concomitant]
     Route: 065
  6. PROTELOS [Concomitant]
     Route: 065
  7. SPIRIVA [Concomitant]
     Route: 065
  8. FINASTERIDE [Concomitant]
     Route: 065

REACTIONS (5)
  - ATROPHIC GLOSSITIS [None]
  - GLOSSITIS [None]
  - GLOSSODYNIA [None]
  - ORAL CANDIDIASIS [None]
  - TONGUE DISORDER [None]
